FAERS Safety Report 12053714 (Version 2)
Quarter: 2016Q1

REPORT INFORMATION
  Report Type: Spontaneous
  Country: JP (occurrence: JP)
  Receive Date: 20160209
  Receipt Date: 20160212
  Transmission Date: 20160526
  Serious: Yes (Life-Threatening, Other)
  Sender: FDA-Public Use
  Company Number: JP-009507513-1602JPN004144

PATIENT

DRUGS (2)
  1. TEMODAL [Suspect]
     Active Substance: TEMOZOLOMIDE
     Indication: NEOPLASM
     Dosage: 250 MG/M2, CYCLICAL (250 MG/M2/DAY X 5 DAYS)
     Route: 048
  2. IRINOTECAN HYDROCHLORIDE. [Concomitant]
     Active Substance: IRINOTECAN HYDROCHLORIDE
     Indication: NEOPLASM
     Dosage: 50 MG/M2, CYCLICAL, DIVIDED DOSE FREQUENCY UNKNOWN. 5 DAYS TREATMENT IN TOTAL
     Route: 051

REACTIONS (5)
  - Febrile neutropenia [Unknown]
  - Neutropenia [Unknown]
  - Sepsis [Unknown]
  - Diarrhoea [Unknown]
  - Bronchopulmonary aspergillosis [Unknown]
